FAERS Safety Report 7541754-5 (Version None)
Quarter: 2011Q2

REPORT INFORMATION
  Report Type: 
  Country: None (occurrence: None)
  Receive Date: 20110613
  Receipt Date: 20110531
  Transmission Date: 20111010
  Serious: Yes (Other)
  Sender: FDA-Public Use
  Company Number: US-ELI_LILLY_AND_COMPANY-US201104006754

PATIENT
  Sex: Female

DRUGS (8)
  1. PULMICORT [Concomitant]
  2. FORTEO [Suspect]
     Indication: OSTEOPOROSIS
     Dosage: 20 UG, QD
     Route: 065
     Dates: start: 20110201
  3. FORTEO [Suspect]
     Dosage: 20 UG, QD
     Route: 065
  4. ACIDOPHILUS [Concomitant]
  5. DOXYCYCLINE [Concomitant]
     Dosage: UNK, OTHER
  6. POTASSIUM CHLORIDE [Concomitant]
  7. CALCIUM +VIT D [Concomitant]
  8. STOOL SOFTENER [Concomitant]

REACTIONS (3)
  - BALANCE DISORDER [None]
  - ARTHRITIS [None]
  - ACOUSTIC NEUROMA [None]
